FAERS Safety Report 8464318-8 (Version None)
Quarter: 2012Q2

REPORT INFORMATION
  Report Type: 
  Country: None (occurrence: None)
  Receive Date: 20120625
  Receipt Date: 20120612
  Transmission Date: 20120825
  Serious: Yes (Hospitalization, Other)
  Sender: FDA-Public Use
  Company Number: US-BAYER-2012-059341

PATIENT

DRUGS (1)
  1. ASPIRIN [Suspect]
     Indication: CHEST PAIN
     Dosage: BOTTLE COUNT 20S
     Route: 048

REACTIONS (1)
  - CHEST PAIN [None]
